FAERS Safety Report 4929071-0 (Version None)
Quarter: 2006Q1

REPORT INFORMATION
  Report Type: 
  Country: None (occurrence: None)
  Receive Date: 20060301
  Receipt Date: 20050418
  Transmission Date: 20060701
  Serious: Yes (Hospitalization)
  Sender: FDA-Public Use
  Company Number: US-MERCK-0504USA03507

PATIENT
  Age: 83 Year
  Sex: Female
  Weight: 52 kg

DRUGS (9)
  1. VIOXX [Suspect]
     Route: 048
     Dates: start: 20020101
  2. CELEBREX [Concomitant]
     Route: 065
  3. EVISTA [Concomitant]
     Route: 065
  4. ASPIRIN [Concomitant]
     Route: 065
  5. ANTIVERT [Concomitant]
     Route: 065
  6. SYNTHROID [Concomitant]
     Route: 065
  7. OS-CAL + D [Concomitant]
     Route: 065
  8. VITAMINS (UNSPECIFIED) [Concomitant]
     Route: 065
  9. VITAMINS (UNSPECIFIED) [Concomitant]
     Route: 065

REACTIONS (8)
  - CEREBROVASCULAR ACCIDENT [None]
  - FEMUR FRACTURE [None]
  - HYPOTHYROIDISM [None]
  - INTERVERTEBRAL DISC DEGENERATION [None]
  - OSTEOARTHRITIS [None]
  - OSTEOPOROSIS [None]
  - SPONDYLOLISTHESIS [None]
  - TRANSIENT ISCHAEMIC ATTACK [None]
